FAERS Safety Report 20456180 (Version 3)
Quarter: 2022Q1

REPORT INFORMATION
  Report Type: Spontaneous
  Country: DE (occurrence: DE)
  Receive Date: 20220210
  Receipt Date: 20220322
  Transmission Date: 20220424
  Serious: No
  Sender: FDA-Public Use
  Company Number: DE-UCBSA-2022006131

PATIENT
  Sex: Female
  Weight: 65 kg

DRUGS (1)
  1. NEUPRO [Suspect]
     Active Substance: ROTIGOTINE
     Indication: Restless legs syndrome
     Dosage: 1 DOSAGE FORM, ONCE DAILY (QD)
     Dates: start: 2019

REACTIONS (3)
  - Application site pruritus [Not Recovered/Not Resolved]
  - Application site erythema [Unknown]
  - Device adhesion issue [Unknown]
